FAERS Safety Report 16008641 (Version 1)
Quarter: 2019Q1

REPORT INFORMATION
  Report Type: Spontaneous
  Country: US (occurrence: US)
  Receive Date: 20190226
  Receipt Date: 20190226
  Transmission Date: 20190418
  Serious: No
  Sender: FDA-Public Use
  Company Number: US-AMAG PHARMACEUTICALS, INC.-AMAG201900194

PATIENT
  Age: 62 Year
  Sex: Female
  Weight: 43.08 kg

DRUGS (3)
  1. TOPAMAX [Concomitant]
     Active Substance: TOPIRAMATE
     Indication: ATRIAL SEPTAL DEFECT
     Dosage: 25 UNK, QHS
     Dates: start: 201602
  2. ASA [Concomitant]
     Active Substance: ASPIRIN
     Indication: ATRIAL SEPTAL DEFECT
     Dosage: 81 UNK, QD
     Route: 065
     Dates: start: 201602
  3. INTRAROSA [Suspect]
     Active Substance: PRASTERONE
     Indication: DYSPAREUNIA
     Dosage: 605 MG, QHS
     Route: 067
     Dates: start: 20190115, end: 20190115

REACTIONS (5)
  - Blood pressure increased [Unknown]
  - Dizziness [Unknown]
  - Hot flush [Recovered/Resolved]
  - Visual impairment [Unknown]
  - Blood pressure decreased [Recovered/Resolved]

NARRATIVE: CASE EVENT DATE: 201901
